FAERS Safety Report 4752067-9 (Version None)
Quarter: 2005Q3

REPORT INFORMATION
  Report Type: 
  Country: None (occurrence: None)
  Receive Date: 20050822
  Receipt Date: 20050712
  Transmission Date: 20060218
  Serious: No
  Sender: FDA-Public Use
  Company Number: PHEH2005US07769

PATIENT
  Age: 54 Year
  Sex: Female

DRUGS (7)
  1. ZELNORM [Suspect]
     Indication: IRRITABLE BOWEL SYNDROME
     Dosage: ORAL
     Route: 048
     Dates: start: 20050301
  2. CELEXA [Concomitant]
  3. STRATTERA [Concomitant]
  4. MOBIC [Concomitant]
  5. LIPITOR [Concomitant]
  6. HORMONES (HORMONES) [Concomitant]
  7. CITRUCEL (METHYLCELLULOSE) [Concomitant]

REACTIONS (3)
  - CONDITION AGGRAVATED [None]
  - INSOMNIA [None]
  - RESTLESS LEGS SYNDROME [None]
